FAERS Safety Report 5171112-2 (Version None)
Quarter: 2006Q4

REPORT INFORMATION
  Report Type: 
  Country: None (occurrence: None)
  Receive Date: 20061206
  Receipt Date: 20061206
  Transmission Date: 20070319
  Serious: Yes (Hospitalization)
  Sender: FDA-Public Use
  Company Number: None

PATIENT
  Age: 84 Year
  Sex: Female
  Weight: 74 kg

DRUGS (12)
  1. OMNIPAQUE 140 [Suspect]
     Indication: COMPUTERISED TOMOGRAM
     Dosage: 100 ML  ONCE  IV
     Route: 042
     Dates: start: 20060809, end: 20060809
  2. ASPIRIN [Concomitant]
  3. PROTONIX [Concomitant]
  4. ATENOLOL [Concomitant]
  5. PLAVIX [Concomitant]
  6. FERROUS SULFATE TAB [Concomitant]
  7. NORVASC [Concomitant]
  8. SLOW-MAG [Concomitant]
  9. ZOCOR [Concomitant]
  10. IMDUR [Concomitant]
  11. HUMULIN 70/30 [Concomitant]
  12. XALATAN [Concomitant]

REACTIONS (5)
  - CONTRAST MEDIA REACTION [None]
  - DIZZINESS [None]
  - PROCEDURAL COMPLICATION [None]
  - SINUS TACHYCARDIA [None]
  - SYNCOPE [None]
